FAERS Safety Report 23849161 (Version 2)
Quarter: 2024Q3

REPORT INFORMATION
  Report Type: Spontaneous
  Country: US (occurrence: US)
  Receive Date: 20240513
  Receipt Date: 20240802
  Transmission Date: 20241017
  Serious: No
  Sender: SANOFI AVENTIS
  Company Number: US-SA-SAC20240510000672

PATIENT
  Age: 48 Year
  Sex: Male

DRUGS (2)
  1. DUPIXENT [Suspect]
     Active Substance: DUPILUMAB
     Indication: Eczema
     Dosage: 600 MG, 1X
     Route: 058
     Dates: start: 20240131, end: 20240131
  2. DUPIXENT [Suspect]
     Active Substance: DUPILUMAB
     Dosage: 300 MG, QOW
     Route: 058
     Dates: start: 2024

REACTIONS (8)
  - Loss of personal independence in daily activities [Unknown]
  - Affective disorder [Unknown]
  - Emotional disorder [Unknown]
  - Abdominal distension [Unknown]
  - Gastritis [Unknown]
  - Eczema [Recovered/Resolved]
  - Drug ineffective [Unknown]
  - Product dose omission in error [Unknown]

NARRATIVE: CASE EVENT DATE: 20240101
